FAERS Safety Report 4534855-7 (Version None)
Quarter: 2004Q4

REPORT INFORMATION
  Report Type: 
  Country: None (occurrence: None)
  Receive Date: 20041222
  Receipt Date: 20040512
  Transmission Date: 20050328
  Serious: No
  Sender: FDA-Public Use
  Company Number: US-BRISTOL-MYERS SQUIBB COMPANY-12585030

PATIENT
  Age: 73 Year
  Sex: Female
  Weight: 56 kg

DRUGS (5)
  1. PRAVACHOL [Suspect]
     Indication: BLOOD CHOLESTEROL INCREASED
     Dosage: DOSAGE FORM = TABLET
     Route: 048
     Dates: start: 20040201, end: 20040301
  2. VITAMIN E [Concomitant]
  3. OS-CAL [Concomitant]
  4. ASPIRIN [Concomitant]
  5. COZAAR [Concomitant]

REACTIONS (2)
  - HEPATIC ENZYME INCREASED [None]
  - MUSCLE CRAMP [None]
